FAERS Safety Report 11177555 (Version 1)
Quarter: 2015Q2

REPORT INFORMATION
  Report Type: Spontaneous
  Country: US (occurrence: US)
  Receive Date: 20150610
  Receipt Date: 20150610
  Transmission Date: 20150821
  Serious: No
  Sender: FDA-Public Use
  Company Number: US-BAYER-2015-308121

PATIENT
  Age: 88 Year
  Sex: Female
  Weight: 43.99 kg

DRUGS (1)
  1. MIRALAX [Suspect]
     Active Substance: POLYETHYLENE GLYCOL 3350
     Indication: SMALL INTESTINAL OBSTRUCTION
     Dosage: 1 DOSE, ONCE
     Route: 048
     Dates: start: 20150531, end: 20150531

REACTIONS (2)
  - Product use issue [None]
  - Diarrhoea [Recovered/Resolved]

NARRATIVE: CASE EVENT DATE: 20150531
